FAERS Safety Report 14623876 (Version 1)
Quarter: 2018Q1

REPORT INFORMATION
  Report Type: Spontaneous
  Country: US (occurrence: US)
  Receive Date: 20180309
  Receipt Date: 20180309
  Transmission Date: 20180509
  Serious: Yes (Hospitalization)
  Sender: FDA-Public Use
  Company Number: None

PATIENT
  Sex: Female

DRUGS (22)
  1. AMITRIPTYLIN [Concomitant]
     Active Substance: AMITRIPTYLINE
  2. METOPROL SUC [Concomitant]
  3. DOXEPIN HCL [Concomitant]
     Active Substance: DOXEPIN HYDROCHLORIDE
  4. PROAIR HFA [Concomitant]
     Active Substance: ALBUTEROL SULFATE
  5. VITAMIN D [Concomitant]
     Active Substance: CHOLECALCIFEROL
  6. BROM/PSE/DM [Concomitant]
  7. MIRTAZAPINE. [Concomitant]
     Active Substance: MIRTAZAPINE
  8. METOPROL SUC [Concomitant]
  9. PAROXETINE. [Concomitant]
     Active Substance: PAROXETINE
  10. CARVEDILOL. [Concomitant]
     Active Substance: CARVEDILOL
  11. CLONAZEPAM. [Concomitant]
     Active Substance: CLONAZEPAM
  12. CANASA [Concomitant]
     Active Substance: MESALAMINE
  13. PREVDNT [Concomitant]
  14. TEMAZEPAM. [Concomitant]
     Active Substance: TEMAZEPAM
  15. DOXYCYCL HYC [Concomitant]
  16. GABAPENTIN. [Concomitant]
     Active Substance: GABAPENTIN
  17. CIPROFLOXACN [Concomitant]
     Active Substance: CIPROFLOXACIN
  18. STELARA [Suspect]
     Active Substance: USTEKINUMAB
     Indication: CROHN^S DISEASE
     Dosage: 90 MG Q8WKS SC
     Route: 058
     Dates: start: 20170221
  19. CITALOPRAM [Concomitant]
     Active Substance: CITALOPRAM HYDROBROMIDE
  20. SERTRALINE [Concomitant]
     Active Substance: SERTRALINE HYDROCHLORIDE
  21. FLUTICASONE. [Concomitant]
     Active Substance: FLUTICASONE
  22. NITROFURANTIN [Concomitant]
     Active Substance: NITROFURANTOIN

REACTIONS (4)
  - Urinary tract infection [None]
  - Medical device site discomfort [None]
  - Condition aggravated [None]
  - Insomnia [None]
